FAERS Safety Report 5411867-2 (Version None)
Quarter: 2007Q3

REPORT INFORMATION
  Report Type: 
  Country: None (occurrence: None)
  Receive Date: 20070713
  Receipt Date: 20070315
  Transmission Date: 20080115
  Serious: No
  Sender: FDA-Public Use
  Company Number: 2007SP000936

PATIENT
  Age: 67 Year
  Sex: Female
  Weight: 126.1 kg

DRUGS (15)
  1. LUNESTA [Suspect]
     Indication: INSOMNIA
     Dosage: 1 MG;1X;ORAL
     Route: 048
     Dates: start: 20070306, end: 20070306
  2. TYLENOL [Concomitant]
  3. CLONIDINE [Concomitant]
  4. HYDRALAZINE HCL [Concomitant]
  5. ZOLOFT [Concomitant]
  6. MAGNESIUM SULFATE [Concomitant]
  7. VITAMIN D [Concomitant]
  8. VITAMIN E [Concomitant]
  9. HERBAL PREPARATION [Concomitant]
  10. ASPIRIN [Concomitant]
  11. BENICAR [Concomitant]
  12. PLAVIX [Concomitant]
  13. LEVEMIR [Concomitant]
  14. HUMALOG [Concomitant]
  15. FLAXSEED OIL [Concomitant]

REACTIONS (2)
  - ANXIETY [None]
  - INSOMNIA [None]
